FAERS Safety Report 10016318 (Version 1)
Quarter: 2014Q1

REPORT INFORMATION
  Report Type: Spontaneous
  Country: US (occurrence: US)
  Receive Date: 20140317
  Receipt Date: 20140317
  Transmission Date: 20141002
  Serious: No
  Sender: FDA-Public Use
  Company Number: US-PFIZER INC-2013115174

PATIENT
  Sex: Female

DRUGS (3)
  1. NEURONTIN [Suspect]
     Indication: SPINAL COLUMN STENOSIS
     Dosage: UNK
  2. NEURONTIN [Suspect]
     Indication: NECK PAIN
  3. NEURONTIN [Suspect]
     Indication: PAIN IN EXTREMITY

REACTIONS (3)
  - Off label use [Unknown]
  - Arthritis [Unknown]
  - Therapeutic response unexpected [Unknown]
